FAERS Safety Report 9624442 (Version 5)
Quarter: 2014Q1

REPORT INFORMATION
  Report Type: Report from Study
  Country: US (occurrence: US)
  Receive Date: 20131015
  Receipt Date: 20140123
  Transmission Date: 20141002
  Serious: Yes (Life-Threatening, Hospitalization, Other)
  Sender: FDA-Public Use
  Company Number: US-TEVA-430490USA

PATIENT
  Age: 73 Year
  Sex: Male
  Weight: 98.1 kg

DRUGS (12)
  1. BENDAMUSTINE [Suspect]
     Indication: MANTLE CELL LYMPHOMA
     Dosage: CYCLE 1
     Route: 042
     Dates: start: 20130827, end: 20130828
  2. BENDAMUSTINE [Suspect]
     Dates: start: 20130924
  3. RITUXIMAB [Suspect]
     Indication: MANTLE CELL LYMPHOMA
     Dosage: 900 MILLIGRAM DAILY; UID/QD
     Route: 042
     Dates: start: 20130827, end: 20130828
  4. RITUXIMAB [Suspect]
     Dosage: 900 MILLIGRAM DAILY; UID/QD
     Route: 042
     Dates: end: 20130924
  5. IBRUTINIB [Suspect]
     Indication: MANTLE CELL LYMPHOMA
     Dosage: 560 MILLIGRAM DAILY;
     Route: 048
     Dates: start: 20130827, end: 20130828
  6. FAMOTIDINE [Concomitant]
     Indication: DYSPEPSIA
     Dosage: 40 MILLIGRAM DAILY;
     Route: 048
     Dates: start: 20130814
  7. FAMOTIDINE [Concomitant]
     Dates: start: 20130828
  8. TAMSULOSIN [Concomitant]
     Indication: RENAL FAILURE
     Route: 048
     Dates: start: 20130816
  9. LISINOPRIL [Concomitant]
     Indication: HYPERTENSION
     Route: 048
  10. HEPARIN [Concomitant]
     Indication: THROMBOSIS PROPHYLAXIS
     Dosage: 15000 IU (INTERNATIONAL UNIT) DAILY;
     Dates: start: 20130828
  11. HEPARIN [Concomitant]
     Dates: start: 20130912
  12. HEPARIN [Concomitant]
     Dosage: 22500 IU/KG DAILY;
     Dates: start: 20130912

REACTIONS (5)
  - Acute myocardial infarction [Recovered/Resolved]
  - Ischaemic cardiomyopathy [Recovered/Resolved]
  - Tumour lysis syndrome [Recovered/Resolved]
  - Renal failure acute [Recovered/Resolved]
  - Septic shock [Recovered/Resolved]
